FAERS Safety Report 14670776 (Version 12)
Quarter: 2018Q4

REPORT INFORMATION
  Report Type: Report from Study
  Country: US (occurrence: US)
  Receive Date: 20180322
  Receipt Date: 20181009
  Transmission Date: 20190204
  Serious: Yes (Hospitalization, Other)
  Sender: FDA-Public Use
  Company Number: US-ACTELION-A-NJ2018-169297

PATIENT
  Age: 36 Year
  Sex: Female
  Weight: 61.22 kg

DRUGS (4)
  1. OPSUMIT [Suspect]
     Active Substance: MACITENTAN
     Indication: PULMONARY HYPERTENSION
     Dosage: 10 MG, QD
     Route: 048
     Dates: start: 20180221
  2. REMODULIN [Suspect]
     Active Substance: TREPROSTINIL
     Indication: PRODUCT USED FOR UNKNOWN INDICATION
     Dosage: UNK
     Route: 058
  3. REMODULIN [Suspect]
     Active Substance: TREPROSTINIL
     Dosage: UNK
     Route: 042
  4. REMODULIN [Suspect]
     Active Substance: TREPROSTINIL
     Dosage: UNK
     Route: 058

REACTIONS (16)
  - Liver disorder [Unknown]
  - Transfusion [Unknown]
  - Fatigue [Unknown]
  - Dyspnoea [Unknown]
  - Hospitalisation [Unknown]
  - Oedema peripheral [Unknown]
  - Paracentesis [Unknown]
  - Encephalopathy [Unknown]
  - White blood cell count decreased [Unknown]
  - Infusion site erythema [Recovering/Resolving]
  - Liver transplant [Unknown]
  - Infusion site pain [Unknown]
  - Gastrointestinal tube insertion [Unknown]
  - Abdominal pain [Unknown]
  - Ascites [Unknown]
  - Infusion site swelling [Recovering/Resolving]

NARRATIVE: CASE EVENT DATE: 20180730
